FAERS Safety Report 6099022-7 (Version None)
Quarter: 2009Q1

REPORT INFORMATION
  Report Type: 
  Country: None (occurrence: None)
  Receive Date: 20090302
  Receipt Date: 20090218
  Transmission Date: 20090719
  Serious: Yes (Hospitalization, Other)
  Sender: FDA-Public Use
  Company Number: GB-PFIZER INC-2009173659

PATIENT

DRUGS (1)
  1. DEPO-MEDRONE [Suspect]
     Indication: TENDON DISORDER
     Dosage: UNK
     Dates: start: 20090101

REACTIONS (6)
  - ANAPHYLACTIC SHOCK [None]
  - ASTHENIA [None]
  - DEPRESSION [None]
  - EYE PAIN [None]
  - HYPOAESTHESIA [None]
  - PARAESTHESIA [None]
